FAERS Safety Report 4397434-0 (Version None)
Quarter: 2004Q2

REPORT INFORMATION
  Report Type: 
  Country: None (occurrence: None)
  Receive Date: 20040621
  Receipt Date: 20040206
  Transmission Date: 20050107
  Serious: Yes (Other)
  Sender: FDA-Public Use
  Company Number: USA-2004-0012896

PATIENT
  Age: 51 Year
  Sex: Male

DRUGS (5)
  1. OXYCONTIN [Suspect]
     Indication: PAIN
     Dosage: 80 MG, Q12H, ORAL
     Route: 048
  2. PLAVIX [Concomitant]
  3. PRILOSEC [Concomitant]
  4. ASPIRIN [Concomitant]
  5. XANAX [Concomitant]

REACTIONS (6)
  - DRUG ABUSER [None]
  - DYSGEUSIA [None]
  - PARANOIA [None]
  - RETCHING [None]
  - TOOTHACHE [None]
  - TREMOR [None]
